FAERS Safety Report 9133512 (Version 2)
Quarter: 2013Q1

REPORT INFORMATION
  Report Type: Spontaneous
  Country: IE (occurrence: IE)
  Receive Date: 20130301
  Receipt Date: 20130321
  Transmission Date: 20140127
  Serious: Yes (Other)
  Sender: FDA-Public Use
  Company Number: IE-ASTRAZENECA-2013SE11661

PATIENT
  Age: 60 Year
  Sex: Male

DRUGS (10)
  1. ESOMEPRAZOLE [Suspect]
     Route: 048
  2. MEROPENEM [Interacting]
     Indication: ESCHERICHIA INFECTION
     Route: 042
     Dates: start: 20121105, end: 20121112
  3. PARACETAMOL [Interacting]
  4. LINEZOLID [Interacting]
     Indication: ESCHERICHIA INFECTION
     Dates: end: 20121113
  5. VORICONAZOLE [Interacting]
     Indication: ESCHERICHIA INFECTION
     Route: 042
     Dates: start: 20121101, end: 20121113
  6. LIBRIUM [Interacting]
  7. DIFENE [Interacting]
  8. COLOMYCIN [Concomitant]
     Indication: ESCHERICHIA INFECTION
  9. AMIKACIN [Concomitant]
     Indication: ESCHERICHIA INFECTION
  10. GENTAMICIN [Concomitant]
     Indication: ESCHERICHIA INFECTION

REACTIONS (4)
  - Drug interaction [Unknown]
  - Liver function test abnormal [Recovered/Resolved]
  - Hyperhidrosis [Recovered/Resolved]
  - Renal impairment [Unknown]
